FAERS Safety Report 4467873-8 (Version None)
Quarter: 2004Q4

REPORT INFORMATION
  Report Type: 
  Country: None (occurrence: None)
  Receive Date: 20041004
  Receipt Date: 20041004
  Transmission Date: 20050328
  Serious: No
  Sender: FDA-Public Use
  Company Number: None

PATIENT
  Age: 38 Year
  Sex: Female

DRUGS (1)
  1. ZONEGRAN [Suspect]
     Indication: BIPOLAR II DISORDER
     Dosage: PO
     Route: 048
     Dates: start: 20040610, end: 20040615

REACTIONS (6)
  - BLISTER [None]
  - BURNING SENSATION [None]
  - EXCORIATION [None]
  - PRURITUS [None]
  - RASH [None]
  - SKIN DESQUAMATION [None]
